FAERS Safety Report 9554004 (Version 1)
Quarter: 2013Q3

REPORT INFORMATION
  Report Type: Spontaneous
  Country: US (occurrence: US)
  Receive Date: 20130925
  Receipt Date: 20130925
  Transmission Date: 20140515
  Serious: Yes (Other)
  Sender: FDA-Public Use
  Company Number: US-GLAXOSMITHKLINE-A1042735A

PATIENT
  Age: 26 Year
  Sex: Male
  Weight: 33.6 kg

DRUGS (9)
  1. VOTRIENT [Suspect]
     Indication: EWING^S SARCOMA
     Dosage: 600MG PER DAY
     Route: 048
  2. OXYCODONE [Concomitant]
  3. ADDERALL [Concomitant]
  4. ATIVAN [Concomitant]
  5. ZOFRAN [Concomitant]
  6. SYNTHROID [Concomitant]
  7. MARINOL [Concomitant]
  8. SENNA [Concomitant]
  9. TYLENOL [Concomitant]

REACTIONS (5)
  - Tumour pain [Unknown]
  - Fatigue [Unknown]
  - Dizziness [Unknown]
  - Constipation [Unknown]
  - Decreased appetite [Unknown]
